FAERS Safety Report 9417094 (Version 1)
Quarter: 2013Q3

REPORT INFORMATION
  Report Type: Spontaneous
  Country: IT (occurrence: IT)
  Receive Date: 20130724
  Receipt Date: 20130724
  Transmission Date: 20140515
  Serious: Yes (Other)
  Sender: FDA-Public Use
  Company Number: IT-JNJFOC-20130710188

PATIENT
  Sex: 0

DRUGS (1)
  1. RISPERDAL [Suspect]
     Indication: PRODUCT USED FOR UNKNOWN INDICATION
     Route: 048
     Dates: start: 20130715, end: 20130715

REACTIONS (3)
  - Self injurious behaviour [Unknown]
  - Intentional overdose [Unknown]
  - Tachycardia [Unknown]
